FAERS Safety Report 21926966 (Version 2)
Quarter: 2023Q1

REPORT INFORMATION
  Report Type: Spontaneous
  Country: JP (occurrence: JP)
  Receive Date: 20230130
  Receipt Date: 20230216
  Transmission Date: 20230418
  Serious: Yes (Hospitalization, Other)
  Sender: FDA-Public Use
  Company Number: JP-OTSUKA-2023_002260

PATIENT
  Age: 8 Decade
  Sex: Female

DRUGS (1)
  1. ABILIFY [Suspect]
     Active Substance: ARIPIPRAZOLE
     Indication: Schizophrenia
     Dosage: UNK
     Route: 048

REACTIONS (6)
  - Communication disorder [Recovering/Resolving]
  - Eating disorder [Unknown]
  - Hallucination, auditory [Recovering/Resolving]
  - Abnormal behaviour [Recovering/Resolving]
  - Salivary hypersecretion [Recovered/Resolved]
  - Therapy cessation [Unknown]
